FAERS Safety Report 5585905-0 (Version None)
Quarter: 2008Q1

REPORT INFORMATION
  Report Type: 
  Country: None (occurrence: None)
  Receive Date: 20080109
  Receipt Date: 20071214
  Transmission Date: 20080703
  Serious: No
  Sender: FDA-Public Use
  Company Number: US-BOEHRINGER INGELHEIM PHARMACEUTICALS, INC.-2007-BP-26238BP

PATIENT
  Sex: Male

DRUGS (2)
  1. MOBIC [Suspect]
     Indication: OSTEOARTHRITIS
     Route: 048
     Dates: start: 20071211
  2. ATENOLOL [Concomitant]
     Route: 048

REACTIONS (1)
  - INSOMNIA [None]
